FAERS Safety Report 6160924-4 (Version None)
Quarter: 2009Q2

REPORT INFORMATION
  Report Type: 
  Country: None (occurrence: None)
  Receive Date: 20090420
  Receipt Date: 20090420
  Transmission Date: 20091009
  Serious: Yes (Hospitalization)
  Sender: FDA-Public Use
  Company Number: PHHO2007US10913

PATIENT
  Sex: Male
  Weight: 79.5 kg

DRUGS (9)
  1. CIBADREX T29368+ [Suspect]
     Indication: HYPERTENSION
     Dosage: LEVEL 1
     Route: 048
     Dates: start: 20050422, end: 20050512
  2. CIBADREX T29368+ [Suspect]
     Dosage: UNKNOWN
     Route: 048
     Dates: start: 20050513, end: 20050606
  3. CIBADREX T29368+ [Suspect]
     Dosage: UNK, LEVEL 3
     Route: 048
     Dates: start: 20050607, end: 20051020
  4. CIBADREX T29368+ [Suspect]
     Dosage: LEVEL 2
     Route: 048
     Dates: start: 20051021, end: 20070619
  5. TOPROL-XL [Concomitant]
     Indication: CARDIOVASCULAR EVENT PROPHYLAXIS
     Dosage: 100 MG, QD
     Route: 048
     Dates: start: 20050701
  6. CRESTOR [Concomitant]
     Indication: HYPERLIPIDAEMIA
     Dosage: 5 MG, QD
     Route: 048
     Dates: start: 20070501
  7. RYTHMOL [Concomitant]
     Indication: ATRIAL FLUTTER
     Dosage: 325 MG, BID
     Route: 048
     Dates: start: 20070531
  8. LASIX [Concomitant]
     Indication: OEDEMA
     Dosage: 20 MG, QD
     Dates: start: 20070409, end: 20070525
  9. IBUPROFEN [Concomitant]

REACTIONS (6)
  - BLOOD CREATININE INCREASED [None]
  - CHRONIC OBSTRUCTIVE PULMONARY DISEASE [None]
  - DIZZINESS [None]
  - DYSPNOEA EXERTIONAL [None]
  - FLUID OVERLOAD [None]
  - RENAL IMPAIRMENT [None]
